FAERS Safety Report 6126783-0 (Version None)
Quarter: 2009Q1

REPORT INFORMATION
  Report Type: 
  Country: None (occurrence: None)
  Receive Date: 20090320
  Receipt Date: 20090310
  Transmission Date: 20090719
  Serious: Yes (Other)
  Sender: FDA-Public Use
  Company Number: BR-PFIZER INC-2009182631

PATIENT

DRUGS (6)
  1. CABERGOLINE [Suspect]
     Indication: SUPPRESSED LACTATION
     Dosage: 0.5 MG, 1X/DAY EVERY WEEK
     Route: 048
     Dates: start: 20090201, end: 20090101
  2. CEFASEL [Concomitant]
     Dosage: 500 MG
     Route: 065
     Dates: start: 20090206, end: 20090301
  3. AMOXICILLIN [Concomitant]
     Dosage: 500 MG
     Route: 065
     Dates: start: 20090206, end: 20090301
  4. CLENIL [Concomitant]
     Dosage: 50 MG
     Route: 065
     Dates: start: 20080924
  5. ALL OTHER THERAPEUTIC PRODUCTS [Concomitant]
     Dosage: UNK
     Route: 065
     Dates: start: 20080206
  6. LORATADINE [Concomitant]
     Dosage: 10 MG
     Route: 065
     Dates: start: 20080924

REACTIONS (4)
  - BLISTER [None]
  - BREAST DISCHARGE [None]
  - DRUG INEFFECTIVE [None]
  - GINGIVAL INJURY [None]
